FAERS Safety Report 25984125 (Version 3)
Quarter: 2025Q4

REPORT INFORMATION
  Report Type: Spontaneous
  Country: US (occurrence: US)
  Receive Date: 20251031
  Receipt Date: 20251229
  Transmission Date: 20260117
  Serious: Yes (Hospitalization, Other)
  Sender: BRISTOL-MYERS SQUIBB COMPANY
  Company Number: US-BRISTOL-MYERS SQUIBB COMPANY-2025-147653

PATIENT
  Age: 43 Year
  Sex: Male

DRUGS (3)
  1. ORENCIA [Suspect]
     Active Substance: ABATACEPT
     Indication: Rheumatoid arthritis
     Dosage: EVERY 7 DAYS
     Route: 058
     Dates: start: 202201
  2. ORENCIA [Suspect]
     Active Substance: ABATACEPT
     Route: 058
     Dates: start: 202510
  3. ORENCIA [Suspect]
     Active Substance: ABATACEPT
     Dosage: EVERY 7 DAYS
     Route: 058
     Dates: start: 202201

REACTIONS (4)
  - Cerebrospinal fluid leakage [Unknown]
  - Post procedural complication [Unknown]
  - Rheumatoid arthritis [Unknown]
  - Therapeutic response decreased [Unknown]
